FAERS Safety Report 16027370 (Version 2)
Quarter: 2019Q3

REPORT INFORMATION
  Report Type: Report from Study
  Country: None (occurrence: BR)
  Receive Date: 20190304
  Receipt Date: 20190823
  Transmission Date: 20191004
  Serious: Yes (Congenital Anomaly, Other)
  Sender: FDA-Public Use
  Company Number: BR-ABBVIE-19K-020-2686623-00

PATIENT
  Age: 71 Year
  Sex: Male

DRUGS (2)
  1. HUMIRA [Suspect]
     Active Substance: ADALIMUMAB
     Route: 058
  2. HUMIRA [Suspect]
     Active Substance: ADALIMUMAB
     Indication: PSORIASIS
     Route: 058
     Dates: start: 20160328

REACTIONS (7)
  - Visual impairment [Recovered/Resolved]
  - Stress [Unknown]
  - Optic nerve disorder [Unknown]
  - Cataract [Unknown]
  - Optic nerve neoplasm [Unknown]
  - Nervousness [Unknown]
  - Vision blurred [Unknown]

NARRATIVE: CASE EVENT DATE: 201906
